FAERS Safety Report 19445121 (Version 1)
Quarter: 2021Q2

REPORT INFORMATION
  Report Type: Spontaneous
  Country: PT (occurrence: PT)
  Receive Date: 20210622
  Receipt Date: 20210622
  Transmission Date: 20210717
  Serious: Yes (Hospitalization, Other)
  Sender: FDA-Public Use
  Company Number: PT-AUROBINDO-AUR-APL-2021-025776

PATIENT
  Age: 65 Year
  Sex: Male

DRUGS (5)
  1. VORICONAZOLE. [Suspect]
     Active Substance: VORICONAZOLE
     Dosage: 200 MILLIGRAM, TWO TIMES A DAY (MAINTENANCE DOSE)
     Route: 048
  2. PREDNISOLONE. [Concomitant]
     Active Substance: PREDNISOLONE
     Indication: PROCTITIS ULCERATIVE
     Dosage: UNK
     Route: 065
  3. ULCERASE [COLLAGENASE] [Suspect]
     Active Substance: COLLAGENASE CLOSTRIDIUM HISTOLYTICUM
     Indication: FUSARIUM INFECTION
     Dosage: UNK (GEL)
     Route: 061
  4. OCTISET [Suspect]
     Active Substance: OCTENIDINE\PHENOXYETHANOL
     Indication: FUSARIUM INFECTION
     Dosage: UNK (GEL)
     Route: 061
  5. VORICONAZOLE. [Suspect]
     Active Substance: VORICONAZOLE
     Indication: FUSARIUM INFECTION
     Dosage: 400 MILLIGRAM, TWO TIMES A DAY (LOADING DOSE)
     Route: 048

REACTIONS (1)
  - Drug ineffective [Unknown]
